FAERS Safety Report 16380014 (Version 4)
Quarter: 2019Q3

REPORT INFORMATION
  Report Type: Report from Study
  Country: CO (occurrence: CO)
  Receive Date: 20190531
  Receipt Date: 20190806
  Transmission Date: 20191004
  Serious: Yes (Other)
  Sender: FDA-Public Use
  Company Number: CO-ALLERGAN-1922254US

PATIENT
  Sex: Female
  Weight: 61.5 kg

DRUGS (7)
  1. BLINDED PLACEBO [Suspect]
     Active Substance: INVESTIGATIONAL PRODUCT
     Indication: OCULAR HYPERTENSION
     Dosage: UNK
     Dates: start: 20181115, end: 20181115
  2. BLINDED BIMATOPROST 0.015 MG INS (11048X) [Suspect]
     Active Substance: BIMATOPROST
     Dosage: UNK
     Dates: start: 20180405, end: 20180405
  3. BLINDED BIMATOPROST 0.01 MG INS (11047X) [Suspect]
     Active Substance: BIMATOPROST
     Dosage: UNK
     Dates: start: 20180405, end: 20180405
  4. BLINDED PLACEBO [Suspect]
     Active Substance: INVESTIGATIONAL PRODUCT
     Dosage: UNK
     Dates: start: 20180405, end: 20180405
  5. FLUOROMETHOLONE 0.1% + TETRAHYDROZOLINE 0.025% [Concomitant]
     Indication: IRIDOCYCLITIS
     Dosage: 1 GTT, BID
     Route: 047
     Dates: start: 20190318, end: 20190620
  6. BLINDED BIMATOPROST 0.01 MG INS (11047X) [Suspect]
     Active Substance: BIMATOPROST
     Indication: OCULAR HYPERTENSION
     Dosage: UNK
     Dates: start: 20181115, end: 20181115
  7. BLINDED BIMATOPROST 0.015 MG INS (11048X) [Suspect]
     Active Substance: BIMATOPROST
     Indication: OCULAR HYPERTENSION
     Dosage: UNK
     Dates: start: 20181115, end: 20181115

REACTIONS (1)
  - Corneal endothelial cell loss [Not Recovered/Not Resolved]

NARRATIVE: CASE EVENT DATE: 20190527
